FAERS Safety Report 5360865-6 (Version None)
Quarter: 2007Q2

REPORT INFORMATION
  Report Type: 
  Country: None (occurrence: None)
  Receive Date: 20070618
  Receipt Date: 20070606
  Transmission Date: 20071010
  Serious: Yes (Hospitalization, Other)
  Sender: FDA-Public Use
  Company Number: FR-GILEAD-2007-0012395

PATIENT
  Sex: Male

DRUGS (4)
  1. TRUVADA [Suspect]
     Indication: HIV INFECTION
     Route: 048
     Dates: start: 20070328
  2. TRUVADA [Suspect]
     Indication: HEPATITIS B VIRUS
  3. KALETRA [Concomitant]
     Indication: HIV INFECTION
     Route: 048
     Dates: start: 20070328, end: 20070525
  4. BACTRIM DS [Concomitant]
     Route: 048
     Dates: start: 20070218, end: 20070525

REACTIONS (5)
  - BLOOD BILIRUBIN INCREASED [None]
  - CELL DEATH [None]
  - CHOLESTASIS [None]
  - HEPATITIS [None]
  - TRANSAMINASES INCREASED [None]
